FAERS Safety Report 17091457 (Version 8)
Quarter: 2020Q2

REPORT INFORMATION
  Report Type: Spontaneous
  Country: US (occurrence: US)
  Receive Date: 20191129
  Receipt Date: 20200603
  Transmission Date: 20200713
  Serious: Yes (Hospitalization, Disabling, Other)
  Sender: FDA-Public Use
  Company Number: US-ASTRAZENECA-2019SF68661

PATIENT
  Age: 810 Month
  Sex: Male
  Weight: 136.1 kg

DRUGS (1)
  1. BRILINTA [Suspect]
     Active Substance: TICAGRELOR
     Indication: STENT PLACEMENT
     Route: 048

REACTIONS (16)
  - Feeling abnormal [Unknown]
  - Depressed mood [Unknown]
  - Mental disorder [Unknown]
  - Fear-related avoidance of activities [Unknown]
  - Insomnia [Unknown]
  - Fear [Not Recovered/Not Resolved]
  - Mental impairment [Unknown]
  - Flashback [Unknown]
  - Gait inability [Unknown]
  - Anxiety [Unknown]
  - Mental status changes [Unknown]
  - General physical health deterioration [Unknown]
  - Cerebral haemorrhage [Unknown]
  - Crying [Unknown]
  - Depression [Unknown]
  - Cerebral disorder [Unknown]
